FAERS Safety Report 6916307-X (Version None)
Quarter: 2010Q3

REPORT INFORMATION
  Report Type: 
  Country: None (occurrence: None)
  Receive Date: 20100810
  Receipt Date: 20100729
  Transmission Date: 20110219
  Serious: Yes (Other)
  Sender: FDA-Public Use
  Company Number: US-PFIZER INC-2010096318

PATIENT
  Sex: Male

DRUGS (3)
  1. XALATAN [Suspect]
     Indication: GLAUCOMA
     Dosage: UNK
     Route: 047
     Dates: start: 20090101
  2. XAL-EASE [Suspect]
     Dosage: UNK
     Route: 047
  3. SYSTANE [Concomitant]
     Dosage: UNK, 3X/DAY

REACTIONS (2)
  - HEARING IMPAIRED [None]
  - INTRAOCULAR PRESSURE INCREASED [None]
